FAERS Safety Report 21240068 (Version 1)
Quarter: 2022Q3

REPORT INFORMATION
  Report Type: Spontaneous
  Country: US (occurrence: None)
  Receive Date: 20220821
  Receipt Date: 20220821
  Transmission Date: 20221027
  Serious: Yes (Death)
  Sender: FDA-Public Use
  Company Number: None

PATIENT
  Age: 77 Year
  Sex: Male

DRUGS (2)
  1. WARFARIN [Suspect]
     Active Substance: WARFARIN
  2. ASPIRIN [Suspect]
     Active Substance: ASPIRIN

REACTIONS (8)
  - Dyspnoea [None]
  - Hypoxia [None]
  - Atrial fibrillation [None]
  - Pulmonary oedema [None]
  - International normalised ratio increased [None]
  - Pulmonary alveolar haemorrhage [None]
  - Pulmonary renal syndrome [None]
  - Coagulopathy [None]

NARRATIVE: CASE EVENT DATE: 20220410
